FAERS Safety Report 17507515 (Version 1)
Quarter: 2020Q1

REPORT INFORMATION
  Report Type: Spontaneous
  Country: US (occurrence: US)
  Receive Date: 20200306
  Receipt Date: 20200306
  Transmission Date: 20200409
  Serious: Yes (Hospitalization, Congenital Anomaly)
  Sender: FDA-Public Use
  Company Number: US-ASTRAZENECA-2020SE32811

PATIENT
  Sex: Male

DRUGS (4)
  1. SYNAGIS [Suspect]
     Active Substance: PALIVIZUMAB
     Indication: HETEROTAXIA
     Route: 030
     Dates: start: 20200131
  2. SYNAGIS [Suspect]
     Active Substance: PALIVIZUMAB
     Indication: CONGENITAL INTESTINAL MALFORMATION
     Route: 030
     Dates: start: 20200131
  3. SYNAGIS [Suspect]
     Active Substance: PALIVIZUMAB
     Indication: CONGENITAL CORONARY ARTERY MALFORMATION
     Route: 030
     Dates: start: 20200131
  4. SYNAGIS [Suspect]
     Active Substance: PALIVIZUMAB
     Indication: SPLEEN MALFORMATION
     Route: 030
     Dates: start: 20200131

REACTIONS (1)
  - Hypoxia [Unknown]
